FAERS Safety Report 25801444 (Version 1)
Quarter: 2025Q3

REPORT INFORMATION
  Report Type: Spontaneous
  Country: CN (occurrence: CN)
  Receive Date: 20250915
  Receipt Date: 20250915
  Transmission Date: 20251021
  Serious: Yes (Hospitalization, Other)
  Sender: BAXTER
  Company Number: None

PATIENT
  Age: 5 Year
  Sex: Female
  Weight: 20.8 kg

DRUGS (5)
  1. CYCLOPHOSPHAMIDE [Suspect]
     Active Substance: CYCLOPHOSPHAMIDE
     Indication: Acute lymphocytic leukaemia
     Dosage: 0.829 G, QD
     Route: 041
     Dates: start: 20250508, end: 20250508
  2. DEXTROSE\SODIUM CHLORIDE [Suspect]
     Active Substance: DEXTROSE\SODIUM CHLORIDE
     Dosage: 100 ML, BID ((4:1) GLUCOSE AND SODIUM CHLORIDE INJECTION), Q12H, WITH CYTARABINE
     Route: 041
     Dates: start: 20250508, end: 20250511
  3. DEXTROSE\SODIUM CHLORIDE [Suspect]
     Active Substance: DEXTROSE\SODIUM CHLORIDE
     Dosage: 250 ML, QD ((4:1) GLUCOSE AND SODIUM CHLORIDE INJECTION) WITH CYCLOPHOSPHAMIDE
     Route: 041
     Dates: start: 20250508, end: 20250508
  4. MERCAPTOPURINE [Suspect]
     Active Substance: MERCAPTOPURINE
     Indication: Acute lymphocytic leukaemia
     Dosage: 41 MG, QD, QN
     Route: 048
     Dates: start: 20250508, end: 20250514
  5. CYTARABINE [Suspect]
     Active Substance: CYTARABINE
     Indication: Acute lymphocytic leukaemia
     Dosage: 0.829 G, BID, Q12H
     Route: 041
     Dates: start: 20250508, end: 20250511

REACTIONS (1)
  - Myelosuppression [Recovering/Resolving]

NARRATIVE: CASE EVENT DATE: 20250515
